FAERS Safety Report 16052573 (Version 1)
Quarter: 2019Q1

REPORT INFORMATION
  Report Type: Spontaneous
  Country: FR (occurrence: FR)
  Receive Date: 20190308
  Receipt Date: 20190308
  Transmission Date: 20190418
  Serious: Yes (Other)
  Sender: FDA-Public Use
  Company Number: FR-JNJFOC-20190219777

PATIENT
  Sex: Female
  Weight: 78 kg

DRUGS (7)
  1. KLIPAL [Concomitant]
     Active Substance: ACETAMINOPHEN\CODEINE PHOSPHATE
     Indication: SPONDYLITIS
     Route: 048
     Dates: start: 2012
  2. SIMPONI [Suspect]
     Active Substance: GOLIMUMAB
     Indication: SPONDYLITIS
     Route: 058
     Dates: start: 20121113
  3. MOTILIUM [Concomitant]
     Active Substance: DOMPERIDONE
     Indication: GASTROOESOPHAGEAL REFLUX DISEASE
     Route: 048
     Dates: start: 2012
  4. GAVISCON [Concomitant]
     Active Substance: ALUMINUM HYDROXIDE\MAGNESIUM CARBONATE
     Route: 048
  5. BREXIN                             /00500404/ [Concomitant]
     Active Substance: PIROXICAM BETADEX
     Indication: SPONDYLITIS
     Route: 048
     Dates: start: 2012
  6. IMETH [Concomitant]
     Active Substance: METHOTREXATE SODIUM
     Route: 048
     Dates: start: 2012
  7. AERIUS [Concomitant]
     Route: 048
     Dates: start: 2012

REACTIONS (2)
  - Oesophageal achalasia [Unknown]
  - Oesophageal ulcer [Unknown]

NARRATIVE: CASE EVENT DATE: 2018
